FAERS Safety Report 10157674 (Version 1)
Quarter: 2014Q2

REPORT INFORMATION
  Report Type: Spontaneous
  Country: CN (occurrence: CN)
  Receive Date: 20140507
  Receipt Date: 20140507
  Transmission Date: 20141212
  Serious: Yes (Other)
  Sender: FDA-Public Use
  Company Number: CN-SA-2014SA054714

PATIENT
  Age: 48 Year
  Sex: Male
  Weight: 123 kg

DRUGS (2)
  1. LANTUS [Suspect]
     Indication: DIABETES MELLITUS
     Route: 058
     Dates: start: 201311
  2. REPAGLINIDE [Concomitant]
     Indication: DIABETES MELLITUS
     Route: 058
     Dates: start: 201303

REACTIONS (4)
  - Blindness unilateral [Recovered/Resolved]
  - Visual impairment [Recovered/Resolved]
  - Pruritus [Not Recovered/Not Resolved]
  - Rash macular [Not Recovered/Not Resolved]
